FAERS Safety Report 13940401 (Version 1)
Quarter: 2017Q3

REPORT INFORMATION
  Report Type: Spontaneous
  Country: US (occurrence: US)
  Receive Date: 20170906
  Receipt Date: 20170906
  Transmission Date: 20171127
  Serious: Yes (Hospitalization)
  Sender: FDA-Public Use
  Company Number: US-PFIZER INC-2017380738

PATIENT
  Age: 70 Year
  Sex: Female
  Weight: 53 kg

DRUGS (2)
  1. SYNTHROID [Concomitant]
     Active Substance: LEVOTHYROXINE SODIUM
     Indication: HYPOTHYROIDISM
     Dosage: 0.075 MG, 1X/DAY
     Route: 048
     Dates: start: 1996
  2. PREMARIN [Suspect]
     Active Substance: ESTROGENS, CONJUGATED
     Indication: HORMONE REPLACEMENT THERAPY
     Dosage: 0.625 MG, 1X/DAY
     Route: 048
     Dates: start: 1996

REACTIONS (1)
  - Road traffic accident [Recovered/Resolved with Sequelae]

NARRATIVE: CASE EVENT DATE: 201701
